FAERS Safety Report 19361019 (Version 1)
Quarter: 2021Q2

REPORT INFORMATION
  Report Type: Report from Study
  Country: None (occurrence: US)
  Receive Date: 20210602
  Receipt Date: 20210602
  Transmission Date: 20210717
  Serious: No
  Sender: FDA-Public Use
  Company Number: US-MDD US OPERATIONS-USW202004-000744

PATIENT
  Age: 81 Year
  Sex: Male

DRUGS (7)
  1. SINEMET [Concomitant]
     Active Substance: CARBIDOPA\LEVODOPA
     Dosage: UNKNOWN
  2. APOKYN [Suspect]
     Active Substance: APOMORPHINE HYDROCHLORIDE
     Route: 058
  3. RASAGALINE [Concomitant]
     Active Substance: RASAGILINE
     Dosage: UNKNOWN
  4. APOKYN [Suspect]
     Active Substance: APOMORPHINE HYDROCHLORIDE
     Indication: PARKINSON^S DISEASE
     Route: 058
     Dates: start: 20200217, end: 20200401
  5. MIRAPEX [Concomitant]
     Active Substance: PRAMIPEXOLE DIHYDROCHLORIDE
     Dosage: UNKNOWN
  6. LYRICA [Concomitant]
     Active Substance: PREGABALIN
     Dosage: UNKNOWN
  7. MELOXICAM. [Concomitant]
     Active Substance: MELOXICAM
     Dosage: UNKNOWN

REACTIONS (6)
  - Joint swelling [Recovering/Resolving]
  - Gait inability [Recovering/Resolving]
  - Arthralgia [Recovering/Resolving]
  - Peripheral swelling [Recovering/Resolving]
  - Joint stiffness [Recovering/Resolving]
  - Drug ineffective [Unknown]

NARRATIVE: CASE EVENT DATE: 20200401
